FAERS Safety Report 7350373-5 (Version None)
Quarter: 2011Q1

REPORT INFORMATION
  Report Type: 
  Country: None (occurrence: None)
  Receive Date: 20110314
  Receipt Date: 20110303
  Transmission Date: 20110831
  Serious: Yes (Other)
  Sender: FDA-Public Use
  Company Number: CA-JNJFOC-20100207189

PATIENT
  Sex: Female
  Weight: 59 kg

DRUGS (10)
  1. TYLENOL [Concomitant]
  2. REMICADE [Suspect]
     Indication: RHEUMATOID ARTHRITIS
     Route: 042
  3. METHOTREXATE [Concomitant]
  4. DIOVAN [Concomitant]
  5. PLAQUENIL [Concomitant]
  6. IRON [Concomitant]
  7. SINEQUAN [Concomitant]
  8. RENEDIL [Concomitant]
  9. FOLIC ACID [Concomitant]
  10. OGEN [Concomitant]

REACTIONS (6)
  - SOFT TISSUE INJURY [None]
  - EXCORIATION [None]
  - HYPOAESTHESIA [None]
  - PERIPHERAL COLDNESS [None]
  - JOINT ARTHROPLASTY [None]
  - SKIN INFECTION [None]
